FAERS Safety Report 4470724-9 (Version None)
Quarter: 2004Q4

REPORT INFORMATION
  Report Type: 
  Country: None (occurrence: None)
  Receive Date: 20041006
  Receipt Date: 20040922
  Transmission Date: 20050328
  Serious: Yes (Life-Threatening, Hospitalization)
  Sender: FDA-Public Use
  Company Number: 2004AP04824

PATIENT
  Age: 45 Year
  Sex: Female

DRUGS (4)
  1. IRESSA [Suspect]
     Indication: BRONCHIOLOALVEOLAR CARCINOMA
     Dosage: 250 MG DAILY PO
     Route: 048
     Dates: start: 20040310, end: 20040901
  2. IRESSA [Suspect]
     Indication: LUNG NEOPLASM MALIGNANT
     Dosage: 250 MG DAILY PO
     Route: 048
     Dates: start: 20040310, end: 20040901
  3. GASMOTIN [Concomitant]
  4. NAUZELIN [Concomitant]

REACTIONS (13)
  - ANOREXIA [None]
  - CEREBRAL INFARCTION [None]
  - CSF PROTEIN INCREASED [None]
  - DEPRESSED LEVEL OF CONSCIOUSNESS [None]
  - DISEASE PROGRESSION [None]
  - HEMIPLEGIA [None]
  - LUNG NEOPLASM MALIGNANT [None]
  - MENINGITIS [None]
  - METASTASES TO MENINGES [None]
  - PARANEOPLASTIC SYNDROME [None]
  - PNEUMONIA [None]
  - TONGUE DISORDER [None]
  - ZINC DEFICIENCY [None]
